FAERS Safety Report 8368977-X (Version None)
Quarter: 2012Q2

REPORT INFORMATION
  Report Type: 
  Country: None (occurrence: None)
  Receive Date: 20120518
  Receipt Date: 20120516
  Transmission Date: 20120825
  Serious: No
  Sender: FDA-Public Use
  Company Number: US-PFIZER INC-2012119624

PATIENT
  Sex: Male

DRUGS (2)
  1. CHANTIX [Suspect]
     Dosage: UNK
     Route: 048
     Dates: start: 20120501
  2. CHANTIX [Suspect]
     Indication: SMOKING CESSATION THERAPY
     Dosage: 0.5 MG, 1X/DAY
     Route: 048
     Dates: start: 20120512, end: 20120501

REACTIONS (1)
  - MEMORY IMPAIRMENT [None]
